FAERS Safety Report 4370972-2 (Version None)
Quarter: 2004Q2

REPORT INFORMATION
  Report Type: 
  Country: None (occurrence: None)
  Receive Date: 20040601
  Receipt Date: 20040521
  Transmission Date: 20050107
  Serious: Yes (Other)
  Sender: FDA-Public Use
  Company Number: 2004197476DE

PATIENT
  Age: 68 Year
  Sex: Female
  Weight: 71 kg

DRUGS (5)
  1. CABERGOLINE [Suspect]
     Indication: PARKINSON'S DISEASE
     Dosage: UNKNOWN, TID, ORAL
     Route: 048
     Dates: start: 19980101
  2. MARCUMAR [Concomitant]
  3. ASS-RATIOPHARM [Concomitant]
  4. BISOPROLOL FUMARATE [Concomitant]
  5. NACOM [Concomitant]

REACTIONS (2)
  - CONDITION AGGRAVATED [None]
  - PULMONARY HYPERTENSION [None]
